FAERS Safety Report 20083731 (Version 2)
Quarter: 2021Q4

REPORT INFORMATION
  Report Type: Spontaneous
  Country: PK (occurrence: PK)
  Receive Date: 20211118
  Receipt Date: 20211122
  Transmission Date: 20220304
  Serious: Yes (Death, Hospitalization)
  Sender: FDA-Public Use
  Company Number: PK-CYCLE PHARMACEUTICALS LTD-2021-CYC-000028

PATIENT
  Age: 3 Year
  Sex: Male
  Weight: 17 kg

DRUGS (1)
  1. NITYR [Suspect]
     Active Substance: NITISINONE
     Indication: Tyrosinaemia
     Dosage: 5 MG
     Dates: start: 20210620

REACTIONS (3)
  - Liver disorder [Fatal]
  - Product dose omission issue [Fatal]
  - Product supply issue [Fatal]
